FAERS Safety Report 9078801 (Version 1)
Quarter: 2013Q1

REPORT INFORMATION
  Report Type: Report from Study
  Country: US (occurrence: US)
  Receive Date: 20130130
  Receipt Date: 20130130
  Transmission Date: 20140127
  Serious: No
  Sender: FDA-Public Use
  Company Number: US-ABBOTT-12P-163-0976830-00

PATIENT
  Age: 40 Year
  Sex: Female

DRUGS (4)
  1. HUMIRA [Suspect]
     Indication: CROHN^S DISEASE
     Dates: start: 20120703
  2. METHOTREXATE [Concomitant]
     Indication: CROHN^S DISEASE
     Dosage: 4 PER WEEK
  3. FOLIC ACID [Concomitant]
     Indication: CROHN^S DISEASE
     Dosage: 7 TABS WEEKLY
  4. MORPHINE [Concomitant]
     Indication: CROHN^S DISEASE
     Dosage: 60MG TWICE DAILY AS NEEDED

REACTIONS (2)
  - Sinus congestion [Recovering/Resolving]
  - Nasopharyngitis [Recovering/Resolving]
